FAERS Safety Report 8000137-4 (Version None)
Quarter: 2011Q4

REPORT INFORMATION
  Report Type: 
  Country: None (occurrence: None)
  Receive Date: 20111220
  Receipt Date: 20111220
  Transmission Date: 20120403
  Serious: Yes (Hospitalization)
  Sender: FDA-Public Use
  Company Number: None

PATIENT
  Age: 61 Year
  Sex: Male
  Weight: 97.5 kg

DRUGS (1)
  1. DULOXETIME HYDROCHLORIDE [Suspect]
     Indication: DEPRESSION
     Dosage: 60 MG EVERY DAY PO
     Route: 048
     Dates: start: 20111108, end: 20111112

REACTIONS (2)
  - SUICIDAL IDEATION [None]
  - OSTEOMYELITIS [None]
